APPROVED DRUG PRODUCT: METRONIDAZOLE
Active Ingredient: METRONIDAZOLE
Strength: 500MG
Dosage Form/Route: TABLET;ORAL
Application: N018818 | Product #002
Applicant: MUTUAL PHARMACEUTICAL CO INC
Approved: Feb 16, 1983 | RLD: No | RS: No | Type: DISCN